FAERS Safety Report 18092234 (Version 1)
Quarter: 2020Q3

REPORT INFORMATION
  Report Type: Spontaneous
  Country: GB (occurrence: GB)
  Receive Date: 20200730
  Receipt Date: 20200730
  Transmission Date: 20201103
  Serious: Yes (Hospitalization, Other)
  Sender: FDA-Public Use
  Company Number: GB-ACCORD-193042

PATIENT
  Age: 76 Year
  Sex: Male

DRUGS (11)
  1. AZITHROMYCIN ANHYDROUS. [Interacting]
     Active Substance: AZITHROMYCIN ANHYDROUS
     Indication: CHRONIC OBSTRUCTIVE PULMONARY DISEASE
     Route: 048
     Dates: start: 20130816, end: 20200708
  2. ACETYLSALICYLIC ACID [Concomitant]
     Active Substance: ASPIRIN
  3. LANSOPRAZOLE. [Concomitant]
     Active Substance: LANSOPRAZOLE
  4. ATORVASTATIN/ATORVASTATIN CALCIUM [Suspect]
     Active Substance: ATORVASTATIN CALCIUM
     Indication: ACUTE CORONARY SYNDROME
     Route: 048
     Dates: start: 20170117, end: 20200708
  5. RAMIPRIL. [Concomitant]
     Active Substance: RAMIPRIL
  6. SPIRONOLACTONE. [Concomitant]
     Active Substance: SPIRONOLACTONE
  7. TADALAFIL. [Concomitant]
     Active Substance: TADALAFIL
  8. PROCHLORPERAZINE. [Concomitant]
     Active Substance: PROCHLORPERAZINE
  9. SALBUTAMOL [Concomitant]
     Active Substance: ALBUTEROL
  10. FLUTICASONE PROPIONATE/SALMETEROL XINAFOATE [Concomitant]
     Active Substance: FLUTICASONE PROPIONATE\SALMETEROL XINAFOATE
  11. BISOPROLOL [Concomitant]
     Active Substance: BISOPROLOL

REACTIONS (11)
  - Cholangiocarcinoma [Unknown]
  - Muscular weakness [Unknown]
  - Renal failure [Unknown]
  - Malaise [Unknown]
  - Jaundice [Unknown]
  - Cholangitis [Unknown]
  - Off label use [Unknown]
  - Blood creatine phosphokinase increased [Unknown]
  - Urine output decreased [Unknown]
  - Drug interaction [Unknown]
  - Disease progression [Unknown]

NARRATIVE: CASE EVENT DATE: 20200704
